FAERS Safety Report 6099616-9 (Version None)
Quarter: 2009Q1

REPORT INFORMATION
  Report Type: 
  Country: None (occurrence: None)
  Receive Date: 20090226
  Receipt Date: 20090210
  Transmission Date: 20090719
  Serious: Yes (Hospitalization)
  Sender: FDA-Public Use
  Company Number: 2009-0031

PATIENT
  Age: 65 Year
  Sex: Female

DRUGS (6)
  1. SOMATULINE AUTOGEL 120MG (LANREOTIDE ACETATE) (LANREOTIDE ACETATE) [Suspect]
     Indication: NEUROENDOCRINE TUMOUR
     Dosage: (120 MG, 1 IN 4 WK),  SUBCUTANEOUS
     Route: 058
     Dates: start: 20080319
  2. CALCIUM [Concomitant]
  3. INSULINE [Concomitant]
  4. CREON [Concomitant]
  5. LORAZEPAM [Concomitant]
  6. OMEPRAZOLE [Concomitant]

REACTIONS (5)
  - BLOOD POTASSIUM INCREASED [None]
  - METASTASES TO LIVER [None]
  - PLEURAL EFFUSION [None]
  - PROTEINURIA [None]
  - RENAL FAILURE ACUTE [None]
